FAERS Safety Report 24197082 (Version 1)
Quarter: 2024Q3

REPORT INFORMATION
  Report Type: Spontaneous
  Country: US (occurrence: US)
  Receive Date: 20240810
  Receipt Date: 20240810
  Transmission Date: 20241016
  Serious: No
  Sender: SANOFI AVENTIS
  Company Number: US-SA-SAC20240807000729

PATIENT
  Age: 22 Year
  Sex: Male
  Weight: 97.5 kg

DRUGS (3)
  1. DUPIXENT [Suspect]
     Active Substance: DUPILUMAB
     Indication: Nasal polyps
     Dosage: 300 MG, QOW
     Route: 058
     Dates: start: 20220829, end: 2023
  2. DUPIXENT [Suspect]
     Active Substance: DUPILUMAB
     Dosage: 300 MG, QOW
     Route: 058
     Dates: start: 2023, end: 202407
  3. FLONASE ALLERGY RELIEF [Concomitant]
     Active Substance: FLUTICASONE PROPIONATE

REACTIONS (7)
  - Sinus congestion [Recovering/Resolving]
  - Paranasal sinus discomfort [Recovering/Resolving]
  - Sinus headache [Recovering/Resolving]
  - Nasal congestion [Not Recovered/Not Resolved]
  - Nasal polyps [Recovering/Resolving]
  - Condition aggravated [Recovering/Resolving]
  - Injection site erythema [Not Recovered/Not Resolved]

NARRATIVE: CASE EVENT DATE: 20230101
